FAERS Safety Report 5375458-4 (Version None)
Quarter: 2007Q2

REPORT INFORMATION
  Report Type: 
  Country: None (occurrence: None)
  Receive Date: 20070629
  Receipt Date: 20070615
  Transmission Date: 20071010
  Serious: Yes (Hospitalization, Other)
  Sender: FDA-Public Use
  Company Number: CA-SHR-CA-2007-013350

PATIENT
  Age: 42 Year
  Sex: Male
  Weight: 95 kg

DRUGS (1)
  1. BETASERON [Suspect]
     Indication: SECONDARY PROGRESSIVE MULTIPLE SCLEROSIS
     Dosage: 8 MIU, EVERY 2D
     Route: 058
     Dates: start: 19960301, end: 20060413

REACTIONS (5)
  - CHILLS [None]
  - DECUBITUS ULCER [None]
  - EAR OPERATION [None]
  - MULTIPLE SCLEROSIS RELAPSE [None]
  - TREATMENT NONCOMPLIANCE [None]
